FAERS Safety Report 20772924 (Version 24)
Quarter: 2025Q3

REPORT INFORMATION
  Report Type: Report from Study
  Country: US (occurrence: US)
  Receive Date: 20220502
  Receipt Date: 20250808
  Transmission Date: 20251021
  Serious: Yes (Other)
  Sender: TAKEDA
  Company Number: US-TAKEDA-US201941509

PATIENT
  Sex: Male
  Weight: 76 kg

DRUGS (23)
  1. IDURSULFASE [Suspect]
     Active Substance: IDURSULFASE
     Indication: Mucopolysaccharidosis
     Dosage: 42 MILLIGRAM, 1/WEEK
     Dates: start: 20150204
  2. IDURSULFASE [Suspect]
     Active Substance: IDURSULFASE
     Indication: Mucopolysaccharidosis II
  3. PREDNISONE [Suspect]
     Active Substance: PREDNISONE
     Indication: Product used for unknown indication
  4. EPINEPHRINE [Concomitant]
     Active Substance: EPINEPHRINE
  5. SODIUM CHLORIDE [Concomitant]
     Active Substance: SODIUM CHLORIDE
  6. ATORVASTATIN CALCIUM [Concomitant]
     Active Substance: ATORVASTATIN CALCIUM
  7. DULERA [Concomitant]
     Active Substance: FORMOTEROL FUMARATE DIHYDRATE\MOMETASONE FUROATE
  8. SODIUM CHLORIDE [Concomitant]
     Active Substance: SODIUM CHLORIDE
  9. PFIZER-BIONTECH COVID-19 VACCINE [Concomitant]
     Active Substance: TOZINAMERAN
  10. LEVALBUTEROL TARTRATE [Concomitant]
     Active Substance: LEVALBUTEROL TARTRATE
  11. FLUTICASONE PROPIONATE [Concomitant]
     Active Substance: FLUTICASONE PROPIONATE
  12. EPIPEN [Concomitant]
     Active Substance: EPINEPHRINE
  13. ACETAMINOPHEN [Concomitant]
     Active Substance: ACETAMINOPHEN
  14. LEVALBUTEROL [Concomitant]
     Active Substance: LEVALBUTEROL
  15. DIPHENHYDRAMINE HYDROCHLORIDE [Concomitant]
     Active Substance: DIPHENHYDRAMINE HYDROCHLORIDE
  16. METHYLPREDNISOLONE [Concomitant]
     Active Substance: METHYLPREDNISOLONE
  17. LEVALBUTEROL HYDROCHLORIDE [Concomitant]
     Active Substance: LEVALBUTEROL HYDROCHLORIDE
  18. HYDROCORTISONE [Concomitant]
     Active Substance: HYDROCORTISONE
  19. AMOXICILLIN AND CLAVULANATE POTASSIUM [Concomitant]
     Active Substance: AMOXICILLIN\CLAVULANATE POTASSIUM
  20. ATORVASTATIN [Concomitant]
     Active Substance: ATORVASTATIN
  21. BREYNA [Concomitant]
     Active Substance: BUDESONIDE\FORMOTEROL FUMARATE
  22. DIPHENHYDRAMINE [Concomitant]
     Active Substance: DIPHENHYDRAMINE
  23. DOXYCYCLINE [Concomitant]
     Active Substance: DOXYCYCLINE

REACTIONS (36)
  - Respiratory tract congestion [Recovering/Resolving]
  - Aspiration [Unknown]
  - Oropharyngeal pain [Unknown]
  - Paranasal sinus hypersecretion [Recovering/Resolving]
  - Pain [Recovering/Resolving]
  - Influenza [Not Recovered/Not Resolved]
  - Migraine [Unknown]
  - COVID-19 [Unknown]
  - Flatulence [Recovered/Resolved]
  - Abdominal distension [Recovered/Resolved]
  - Flank pain [Recovered/Resolved]
  - Soft tissue disorder [Unknown]
  - Upper respiratory tract infection [Recovering/Resolving]
  - Throat irritation [Unknown]
  - Sinus congestion [Unknown]
  - Ear congestion [Unknown]
  - Poor venous access [Unknown]
  - Limb injury [Unknown]
  - Accident [Unknown]
  - Eye injury [Unknown]
  - Eye swelling [Unknown]
  - Feeling abnormal [Unknown]
  - Respiratory tract infection [Not Recovered/Not Resolved]
  - Inappropriate schedule of product administration [Unknown]
  - Product dose omission issue [Unknown]
  - Illness [Unknown]
  - Peripheral swelling [Unknown]
  - Productive cough [Unknown]
  - Chills [Unknown]
  - Hypersensitivity [Unknown]
  - Ear infection [Unknown]
  - Infection [Unknown]
  - Fatigue [Recovering/Resolving]
  - Cough [Unknown]
  - Abdominal pain [Recovered/Resolved]
  - Death of relative [Unknown]
